FAERS Safety Report 20156187 (Version 1)
Quarter: 2021Q4

REPORT INFORMATION
  Report Type: Spontaneous
  Country: CO (occurrence: CO)
  Receive Date: 20211207
  Receipt Date: 20211207
  Transmission Date: 20220303
  Serious: No
  Sender: FDA-Public Use
  Company Number: CO-PFIZER INC-2021323952

PATIENT
  Age: 12 Year
  Sex: Male

DRUGS (4)
  1. GENOTROPIN [Suspect]
     Active Substance: SOMATROPIN
     Indication: Pituitary hypoplasia
     Dosage: 0.8 MG, DAILY
     Route: 058
     Dates: start: 201608
  2. GENOTROPIN [Suspect]
     Active Substance: SOMATROPIN
     Indication: Short stature
  3. GENOTROPIN [Suspect]
     Active Substance: SOMATROPIN
     Indication: Bone disorder
  4. GENOTROPIN [Suspect]
     Active Substance: SOMATROPIN
     Indication: Growth hormone deficiency

REACTIONS (5)
  - Product dose omission issue [Unknown]
  - Device use issue [Unknown]
  - Expired device used [Unknown]
  - Drug dose omission by device [Unknown]
  - Device information output issue [Unknown]

NARRATIVE: CASE EVENT DATE: 20200701
